FAERS Safety Report 17255611 (Version 1)
Quarter: 2020Q1

REPORT INFORMATION
  Report Type: Spontaneous
  Country: IT (occurrence: IT)
  Receive Date: 20200110
  Receipt Date: 20200110
  Transmission Date: 20200409
  Serious: Yes (Hospitalization, Other)
  Sender: FDA-Public Use
  Company Number: IT-AUROBINDO-AUR-APL-2020-001594

PATIENT
  Age: 75 Year
  Sex: Male

DRUGS (5)
  1. LASIX [Concomitant]
     Active Substance: FUROSEMIDE
     Indication: CARDIAC FAILURE
     Dosage: UNK
     Route: 065
  2. DELTACORTENE [Concomitant]
     Active Substance: PREDNISONE
     Indication: PRODUCT USED FOR UNKNOWN INDICATION
     Dosage: UNK
     Route: 065
  3. PRADAXA [Concomitant]
     Active Substance: DABIGATRAN ETEXILATE MESYLATE
     Indication: ANTICOAGULANT THERAPY
     Dosage: UNK
     Route: 065
  4. LUVION [Concomitant]
     Indication: CARDIAC FAILURE
     Dosage: UNK
     Route: 065
  5. CARBOPLATIN. [Suspect]
     Active Substance: CARBOPLATIN
     Indication: LUNG NEOPLASM
     Dosage: UNK
     Route: 042
     Dates: start: 20191107

REACTIONS (11)
  - Leukopenia [Unknown]
  - Dry skin [Unknown]
  - Lacrimation increased [Unknown]
  - Cough [Unknown]
  - Onychoclasis [Unknown]
  - Aphthous ulcer [Unknown]
  - Arthralgia [Unknown]
  - Haematoma [Unknown]
  - Constipation [Unknown]
  - Trigger finger [Unknown]
  - Insomnia [Unknown]
